FAERS Safety Report 15764086 (Version 1)
Quarter: 2018Q4

REPORT INFORMATION
  Report Type: Spontaneous
  Country: PL (occurrence: PL)
  Receive Date: 20181227
  Receipt Date: 20181227
  Transmission Date: 20190205
  Serious: Yes (Hospitalization, Other)
  Sender: FDA-Public Use
  Company Number: PL-IPSEN BIOPHARMACEUTICALS, INC.-2018-19871

PATIENT
  Age: 62 Year
  Sex: Male

DRUGS (16)
  1. METOPROLOL. [Concomitant]
     Active Substance: METOPROLOL
  2. SPIRONOLACTONE. [Concomitant]
     Active Substance: SPIRONOLACTONE
     Dosage: EVERY OTHER DAY
  3. PANCREATIN [Concomitant]
     Active Substance: PANCRELIPASE
     Dosage: WITH A MAIN MEAL
  4. HEPARIN [Concomitant]
     Active Substance: HEPARIN SODIUM
     Dosage: 40 MG/0.4 1 AMP. Q.D. S.C.
     Route: 058
  5. IRINOTECAN LIPOSOME [Suspect]
     Active Substance: IRINOTECAN
     Indication: DUCTAL ADENOCARCINOMA OF PANCREAS
  6. OXALIPLATIN. [Suspect]
     Active Substance: OXALIPLATIN
     Indication: DUCTAL ADENOCARCINOMA OF PANCREAS
  7. FUROSEMIDE. [Concomitant]
     Active Substance: FUROSEMIDE
  8. FENTANYL TRANSDERMAL SYSTEM [Concomitant]
     Active Substance: FENTANYL
     Route: 062
  9. KETOPROFEN FORTE [Concomitant]
     Dosage: AND KETOPROFEN DUO1 TABLET AS NEEDED
  10. FLUOROURACIL. [Suspect]
     Active Substance: FLUOROURACIL
     Indication: DUCTAL ADENOCARCINOMA OF PANCREAS
  11. FENTANYL TRANSDERMAL SYSTEM [Concomitant]
     Active Substance: FENTANYL
     Dosage: EVERY 3 DAYS
     Route: 062
  12. ALPRAZOLAM. [Concomitant]
     Active Substance: ALPRAZOLAM
  13. FOLINIC ACID [Suspect]
     Active Substance: LEUCOVORIN
     Indication: DUCTAL ADENOCARCINOMA OF PANCREAS
  14. MORPHINE IR [Concomitant]
     Active Substance: MORPHINE
     Indication: CANCER PAIN
  15. FENTANYL TRANSDERMAL SYSTEM [Concomitant]
     Active Substance: FENTANYL
     Indication: CANCER PAIN
     Route: 062
  16. OXYCODONE [Concomitant]
     Active Substance: OXYCODONE
     Indication: CANCER PAIN

REACTIONS (2)
  - Polyneuropathy [Recovered/Resolved]
  - Neutropenia [Unknown]
